FAERS Safety Report 4345579-3 (Version None)
Quarter: 2004Q2

REPORT INFORMATION
  Report Type: 
  Country: None (occurrence: None)
  Receive Date: 20040421
  Receipt Date: 20040414
  Transmission Date: 20050107
  Serious: Yes (Other)
  Sender: FDA-Public Use
  Company Number: 200403617

PATIENT
  Sex: Male
  Weight: 9.9791 kg

DRUGS (3)
  1. CONC. TYLENOL INFANTS' CHERRY DROPS (ACETMINOPHEN) [Suspect]
     Indication: PYREXIA
     Dosage: 1 DROPPERFUL
     Dates: start: 20000101
  2. CONC. MOTRIN INFANTS' DROPS (IBUPROFEN) [Suspect]
     Indication: PYREXIA
     Dosage: 1/2 DROPPERFUL
     Dates: start: 20000101
  3. TYLENOL [Suspect]
     Indication: PYREXIA
     Dates: start: 20010101

REACTIONS (7)
  - BLOOD DISORDER [None]
  - CONVULSION [None]
  - EAR INFECTION [None]
  - HYPERSENSITIVITY [None]
  - LABORATORY TEST ABNORMAL [None]
  - PSYCHOMOTOR HYPERACTIVITY [None]
  - RASH [None]
